FAERS Safety Report 15801907 (Version 2)
Quarter: 2019Q1

REPORT INFORMATION
  Report Type: Spontaneous
  Country: US (occurrence: US)
  Receive Date: 20190109
  Receipt Date: 20190128
  Transmission Date: 20190417
  Serious: No
  Sender: FDA-Public Use
  Company Number: US-BAYER-2019-006522

PATIENT
  Age: 39 Year
  Sex: Male

DRUGS (2)
  1. GADAVIST [Suspect]
     Active Substance: GADOBUTROL
     Dosage: 10 ML
     Route: 042
  2. GADAVIST [Suspect]
     Active Substance: GADOBUTROL
     Dosage: 0.1 ML/KG, ONCE
     Route: 042
     Dates: start: 20190104, end: 20190104

REACTIONS (3)
  - Malaise [None]
  - Nausea [Recovered/Resolved]
  - Vomiting [Recovered/Resolved]

NARRATIVE: CASE EVENT DATE: 20190104
